FAERS Safety Report 18899158 (Version 1)
Quarter: 2021Q1

REPORT INFORMATION
  Report Type: Spontaneous
  Country: FR (occurrence: FR)
  Receive Date: 20210216
  Receipt Date: 20210216
  Transmission Date: 20210420
  Serious: Yes (Hospitalization)
  Sender: FDA-Public Use
  Company Number: FR-ACCORD-217181

PATIENT
  Age: 44 Year
  Sex: Male

DRUGS (4)
  1. LEXOMIL [Suspect]
     Active Substance: BROMAZEPAM
     Route: 048
     Dates: start: 20200908, end: 20200908
  2. MORPHINE [Concomitant]
     Active Substance: MORPHINE
  3. LOXAPAC [Suspect]
     Active Substance: LOXAPINE
     Dosage: STRENGTH:50 MG
     Route: 048
     Dates: start: 20200908, end: 20200908
  4. ESCITALOPRAM [Suspect]
     Active Substance: ESCITALOPRAM OXALATE
     Route: 048
     Dates: start: 20200908, end: 20200908

REACTIONS (3)
  - Psychomotor skills impaired [Recovered/Resolved]
  - Mydriasis [Recovered/Resolved]
  - Poisoning deliberate [Unknown]

NARRATIVE: CASE EVENT DATE: 20200908
